FAERS Safety Report 22787209 (Version 3)
Quarter: 2023Q4

REPORT INFORMATION
  Report Type: Report from Study
  Country: BR (occurrence: BR)
  Receive Date: 20230804
  Receipt Date: 20231003
  Transmission Date: 20240109
  Serious: Yes (Other)
  Sender: FDA-Public Use
  Company Number: BR-002147023-NVSC2023BR169428

PATIENT
  Age: 39 Year
  Sex: Female

DRUGS (4)
  1. KISQALI [Suspect]
     Active Substance: RIBOCICLIB
     Indication: Breast cancer
     Dosage: UNK
     Route: 065
     Dates: start: 202212
  2. KISQALI [Suspect]
     Active Substance: RIBOCICLIB
     Dosage: UNK, CYCLIC
     Route: 065
  3. KISQALI [Suspect]
     Active Substance: RIBOCICLIB
     Dosage: UNK
     Route: 065
  4. PANTOPRAZOLE [Suspect]
     Active Substance: PANTOPRAZOLE
     Indication: Product used for unknown indication
     Dosage: UNK
     Route: 065

REACTIONS (15)
  - Hepatic neoplasm [Unknown]
  - Oropharyngeal plaque [Unknown]
  - Erythema [Recovering/Resolving]
  - Hypersensitivity [Unknown]
  - Nervousness [Unknown]
  - Gastrooesophageal reflux disease [Not Recovered/Not Resolved]
  - Skin exfoliation [Unknown]
  - Weight decreased [Unknown]
  - Somnolence [Unknown]
  - Malaise [Unknown]
  - Tremor [Unknown]
  - Fatigue [Unknown]
  - Alopecia [Unknown]
  - Rash macular [Recovered/Resolved]
  - Nausea [Not Recovered/Not Resolved]

NARRATIVE: CASE EVENT DATE: 20230301
